FAERS Safety Report 4645550-8 (Version None)
Quarter: 2005Q2

REPORT INFORMATION
  Report Type: 
  Country: None (occurrence: None)
  Receive Date: 20050425
  Receipt Date: 20050411
  Transmission Date: 20051028
  Serious: Yes (Other)
  Sender: FDA-Public Use
  Company Number: 2005059423

PATIENT
  Sex: Female

DRUGS (5)
  1. BEXTRA [Suspect]
     Indication: NECK PAIN
     Dosage: 40 MG, 1 IN 1 D, ORAL
     Route: 048
     Dates: start: 20050228
  2. NORGESIC TABLETS (ORPHENADRINE CITRATE, PARACETAMOL) [Concomitant]
  3. ESCITALOPRAM OXALATE [Concomitant]
  4. LORNOXICAM (LORNOXICAM) [Concomitant]
  5. BETAMETHASONE [Concomitant]

REACTIONS (1)
  - RENAL FAILURE [None]
